FAERS Safety Report 10445717 (Version 4)
Quarter: 2015Q2

REPORT INFORMATION
  Report Type: Spontaneous
  Country: US (occurrence: US)
  Receive Date: 20140910
  Receipt Date: 20150424
  Transmission Date: 20150821
  Serious: Yes (Hospitalization, Other)
  Sender: FDA-Public Use
  Company Number: US-BAYER-2014-135634

PATIENT
  Age: 24 Year
  Sex: Female
  Weight: 76.19 kg

DRUGS (2)
  1. MIRENA [Suspect]
     Active Substance: LEVONORGESTREL
     Indication: CONTRACEPTION
     Dosage: 20 MCG/24HR, CONT
     Route: 015
     Dates: start: 20110513, end: 20120918
  2. VICODIN [Concomitant]
     Active Substance: ACETAMINOPHEN\HYDROCODONE BITARTRATE
     Indication: PROCEDURAL PAIN

REACTIONS (5)
  - Pain [None]
  - Device breakage [None]
  - Injury [None]
  - Complication of device removal [None]
  - Uterine perforation [None]

NARRATIVE: CASE EVENT DATE: 201209
